FAERS Safety Report 19774289 (Version 1)
Quarter: 2021Q3

REPORT INFORMATION
  Report Type: Spontaneous
  Country: FR (occurrence: FR)
  Receive Date: 20210901
  Receipt Date: 20210901
  Transmission Date: 20211014
  Serious: Yes (Hospitalization, Other)
  Sender: FDA-Public Use
  Company Number: FR-MYLANLABS-2021M1057829

PATIENT
  Age: 19 Year
  Sex: Male

DRUGS (1)
  1. ISOTRETINOIN. [Suspect]
     Active Substance: ISOTRETINOIN
     Indication: ACNE
     Dosage: UNK, PROGRESSIVE DOSE INCREASE FROM 20MG TO 80 MG
     Route: 065
     Dates: start: 201812, end: 201906

REACTIONS (6)
  - Suicide attempt [Recovered/Resolved]
  - Thirst [Unknown]
  - Anxiety disorder [Not Recovered/Not Resolved]
  - Suicidal ideation [Unknown]
  - Depression [Not Recovered/Not Resolved]
  - Dry skin [Unknown]
